FAERS Safety Report 14718398 (Version 3)
Quarter: 2018Q3

REPORT INFORMATION
  Report Type: Spontaneous
  Country: US (occurrence: US)
  Receive Date: 20180404
  Receipt Date: 20180905
  Transmission Date: 20181010
  Serious: No
  Sender: FDA-Public Use
  Company Number: US-SA-2018SA078428

PATIENT
  Age: 55 Year
  Sex: Female

DRUGS (1)
  1. DUPIXENT [Suspect]
     Active Substance: DUPILUMAB
     Indication: DERMATITIS ATOPIC
     Dosage: 300 MG,QOW
     Route: 058
     Dates: start: 20170526

REACTIONS (7)
  - Condition aggravated [Unknown]
  - Fatigue [Unknown]
  - Arthropathy [Unknown]
  - Pain [Unknown]
  - Injury associated with device [Unknown]
  - Dizziness [Unknown]
  - Exostosis [Unknown]

NARRATIVE: CASE EVENT DATE: 20180301
